FAERS Safety Report 7015354-X (Version None)
Quarter: 2010Q3

REPORT INFORMATION
  Report Type: 
  Country: None (occurrence: None)
  Receive Date: 20100927
  Receipt Date: 20100920
  Transmission Date: 20110219
  Serious: Yes (Death)
  Sender: FDA-Public Use
  Company Number: US-ELI_LILLY_AND_COMPANY-US201009005602

PATIENT

DRUGS (4)
  1. GEMZAR [Suspect]
     Indication: ADENOCARCINOMA PANCREAS
  2. BEVACIZUMAB [Concomitant]
  3. CAPECITABINE [Concomitant]
  4. THERAPEUTIC RADIOPHARMACEUTICALS [Concomitant]

REACTIONS (1)
  - LARGE INTESTINE PERFORATION [None]
